FAERS Safety Report 5387056-7 (Version None)
Quarter: 2007Q3

REPORT INFORMATION
  Report Type: 
  Country: None (occurrence: None)
  Receive Date: 20070713
  Receipt Date: 20070703
  Transmission Date: 20080115
  Serious: Yes (Hospitalization)
  Sender: FDA-Public Use
  Company Number: JP-ABBOTT-04P-087-0267972-00

PATIENT
  Sex: Female

DRUGS (21)
  1. KALETRA [Suspect]
     Indication: HIV INFECTION
     Route: 048
     Dates: start: 20021005, end: 20050929
  2. NORVIR [Suspect]
     Indication: HIV INFECTION
     Route: 048
     Dates: start: 20050903, end: 20060111
  3. NORVIR [Suspect]
     Route: 048
     Dates: start: 20060126, end: 20060627
  4. NORVIR [Suspect]
     Route: 048
     Dates: start: 20060628
  5. LAMIVUDINE [Suspect]
     Indication: HIV INFECTION
     Route: 048
     Dates: start: 20021005, end: 20060627
  6. LAMIVUDINE [Suspect]
     Route: 048
     Dates: start: 20060112
  7. STAVUDINE [Suspect]
     Indication: HIV INFECTION
     Route: 048
     Dates: start: 20021005, end: 20040219
  8. EMTRICITABINE W/TENOFOVIR [Suspect]
     Indication: HIV INFECTION
     Route: 048
     Dates: start: 20050930, end: 20060111
  9. EMTRICITABINE W/TENOFOVIR [Suspect]
     Route: 048
     Dates: start: 20060628
  10. ATAZANAVIR SULFATE [Suspect]
     Indication: HIV INFECTION
     Route: 048
     Dates: start: 20050930, end: 20060111
  11. ATAZANAVIR SULFATE [Suspect]
     Route: 048
     Dates: start: 20060628
  12. SAQUINAVIR [Suspect]
     Indication: HIV INFECTION
     Route: 048
     Dates: start: 20060126, end: 20060627
  13. NELFINAVIR [Suspect]
     Indication: HIV INFECTION
     Route: 048
     Dates: start: 20060112, end: 20060122
  14. ZIDOVUDINE [Suspect]
     Indication: HIV INFECTION
     Route: 048
     Dates: start: 20040220, end: 20060627
  15. ZIDOVUDINE [Suspect]
     Route: 048
     Dates: start: 20060112
  16. QUETIAPINE FUMARATE [Concomitant]
     Indication: ENCEPHALOPATHY
     Route: 048
     Dates: start: 20021005, end: 20030319
  17. QUETIAPINE FUMARATE [Concomitant]
     Route: 048
     Dates: start: 20021014, end: 20040125
  18. QUETIAPINE FUMARATE [Concomitant]
     Route: 048
     Dates: start: 20040126
  19. LORMETAZEPAM [Concomitant]
     Indication: ENCEPHALOPATHY
     Route: 048
     Dates: start: 20021005, end: 20030319
  20. LORAZEPAM [Concomitant]
     Indication: ENCEPHALOPATHY
     Route: 048
     Dates: start: 20021014, end: 20021202
  21. BACTRIM [Concomitant]
     Indication: ANTIFUNGAL PROPHYLAXIS
     Route: 048
     Dates: start: 20021014

REACTIONS (6)
  - ATYPICAL MYCOBACTERIAL INFECTION [None]
  - HERPES ZOSTER [None]
  - HYPERGLYCAEMIA [None]
  - HYPERLIPIDAEMIA [None]
  - LIPOATROPHY [None]
  - URTICARIA CHRONIC [None]
